FAERS Safety Report 6747856-5 (Version None)
Quarter: 2010Q2

REPORT INFORMATION
  Report Type: 
  Country: None (occurrence: None)
  Receive Date: 20100528
  Receipt Date: 20100517
  Transmission Date: 20101027
  Serious: Yes (Hospitalization, Other)
  Sender: FDA-Public Use
  Company Number: IE-MEDIMMUNE-MEDI-0009921

PATIENT
  Sex: Male
  Weight: 6.6 kg

DRUGS (4)
  1. SYNAGIS [Suspect]
     Indication: RESPIRATORY SYNCYTIAL VIRUS INFECTION
     Route: 030
     Dates: start: 20091119, end: 20091119
  2. PARACETAMOL [Concomitant]
  3. HYOSCINE [Concomitant]
  4. OMEPRAZOLE [Concomitant]

REACTIONS (2)
  - PNEUMONIA ASPIRATION [None]
  - PNEUMONIA VIRAL [None]
